FAERS Safety Report 13572370 (Version 1)
Quarter: 2017Q2

REPORT INFORMATION
  Report Type: Spontaneous
  Country: US (occurrence: US)
  Receive Date: 20170523
  Receipt Date: 20170523
  Transmission Date: 20170830
  Serious: No
  Sender: FDA-Public Use
  Company Number: US-JNJFOC-20170330337

PATIENT
  Age: 74 Year
  Sex: Female
  Weight: 54 kg

DRUGS (5)
  1. IMBRUVICA [Suspect]
     Active Substance: IBRUTINIB
     Indication: WALDENSTROM^S MACROGLOBULINAEMIA
     Route: 048
     Dates: start: 20150323
  2. VITAMIN D3 [Concomitant]
     Active Substance: CHOLECALCIFEROL
  3. MULTIVITAMINS [Concomitant]
     Active Substance: VITAMINS
  4. RITUXAN [Concomitant]
     Active Substance: RITUXIMAB
  5. MELOXICAM. [Concomitant]
     Active Substance: MELOXICAM

REACTIONS (1)
  - Gastric ulcer [Not Recovered/Not Resolved]

NARRATIVE: CASE EVENT DATE: 20170208
